FAERS Safety Report 21501872 (Version 1)
Quarter: 2022Q4

REPORT INFORMATION
  Report Type: Spontaneous
  Country: PT (occurrence: PT)
  Receive Date: 20221025
  Receipt Date: 20221025
  Transmission Date: 20230113
  Serious: Yes (Other)
  Sender: FDA-Public Use
  Company Number: PT-MEDINFARP-2022-0087

PATIENT
  Age: 27 Year
  Sex: Female

DRUGS (5)
  1. ROPIVACAINE [Suspect]
     Active Substance: ROPIVACAINE
     Indication: Epidural anaesthesia
     Dosage: 10 MILLILITER,(INTERMITTENT EPIDURAL BOLUS OF 10 ML ROPIVACAINE 0.13%)
     Route: 065
  2. ROPIVACAINE [Suspect]
     Active Substance: ROPIVACAINE
     Indication: Nerve block
     Dosage: 2 MILLILITER(INTRATHECAL 2ML ROPIVACAINE 0.15%)
     Route: 065
  3. LIDOCAINE [Suspect]
     Active Substance: LIDOCAINE
     Indication: Epidural anaesthesia
     Dosage: 15 MILLILITER,
     Route: 065
  4. SUFENTANIL [Suspect]
     Active Substance: SUFENTANIL
     Indication: Nerve block
     Dosage: 5 MICROGRAM
     Route: 065
  5. SUFENTANIL [Suspect]
     Active Substance: SUFENTANIL
     Indication: Epidural anaesthesia
     Dosage: 2.5 MICROGRAM
     Route: 065

REACTIONS (1)
  - Horner^s syndrome [Recovered/Resolved]
